FAERS Safety Report 5233093-2 (Version None)
Quarter: 2007Q1

REPORT INFORMATION
  Report Type: 
  Country: None (occurrence: None)
  Receive Date: 20061201
  Receipt Date: 20060919
  Transmission Date: 20070707
  Serious: No
  Sender: FDA-Public Use
  Company Number: 2006PV021544

PATIENT
  Age: 60 Year
  Sex: Female
  Weight: 106.5953 kg

DRUGS (4)
  1. BYETTA [Suspect]
     Indication: DIABETES MELLITUS NON-INSULIN-DEPENDENT
     Dosage: 10 MCG;BID;SC
     Route: 058
     Dates: start: 20060917
  2. HYZAAR [Suspect]
     Dosage: QD;PO
     Route: 048
     Dates: start: 20060913, end: 20060917
  3. ALTACE [Concomitant]
  4. METFORMIN HCL [Concomitant]

REACTIONS (8)
  - ABDOMINAL DISTENSION [None]
  - CHILLS [None]
  - DRY MOUTH [None]
  - FLATULENCE [None]
  - HYPERTENSION [None]
  - NAUSEA [None]
  - RETCHING [None]
  - UNEVALUABLE EVENT [None]
